FAERS Safety Report 6913906-6 (Version None)
Quarter: 2010Q3

REPORT INFORMATION
  Report Type: 
  Country: None (occurrence: None)
  Receive Date: 20100809
  Receipt Date: 20100805
  Transmission Date: 20110219
  Serious: Yes (Life-Threatening, Other)
  Sender: FDA-Public Use
  Company Number: US-ROXANE LABORATORIES, INC.-2010-RO-00984RO

PATIENT
  Age: 56 Year
  Sex: Male

DRUGS (6)
  1. DIGOXIN [Suspect]
     Indication: ATRIAL FIBRILLATION
  2. DIGOXIN [Suspect]
  3. AMIODARONE HCL [Suspect]
     Indication: ATRIAL FIBRILLATION
  4. AMIODARONE HCL [Suspect]
  5. METOCLOPRAMIDE [Suspect]
     Indication: POSTOPERATIVE ILEUS
     Route: 042
  6. ATROPINE [Suspect]
     Indication: BRADYARRHYTHMIA

REACTIONS (7)
  - ATRIAL FIBRILLATION [None]
  - BRADYCARDIA [None]
  - CARDIAC ARREST [None]
  - NODAL RHYTHM [None]
  - POSTOPERATIVE ILEUS [None]
  - SINUS TACHYCARDIA [None]
  - ULCER HAEMORRHAGE [None]
